FAERS Safety Report 11446080 (Version 1)
Quarter: 2015Q3

REPORT INFORMATION
  Report Type: Spontaneous
  Country: US (occurrence: US)
  Receive Date: 20150831
  Receipt Date: 20150831
  Transmission Date: 20151125
  Serious: Yes (Other)
  Sender: FDA-Public Use
  Company Number: US-ELI_LILLY_AND_COMPANY-US200809005321

PATIENT
  Age: 44 Year
  Sex: Female

DRUGS (8)
  1. LYRICA [Concomitant]
     Active Substance: PREGABALIN
     Indication: COMPLEX REGIONAL PAIN SYNDROME
     Dosage: 100 MG, 4/D
     Dates: start: 200804
  2. ULTRAM [Concomitant]
     Active Substance: TRAMADOL HYDROCHLORIDE
     Indication: COMPLEX REGIONAL PAIN SYNDROME
     Dosage: 200 MG, DAILY (1/D)
     Dates: start: 20080605
  3. TRAMADOL. [Concomitant]
     Active Substance: TRAMADOL
     Indication: COMPLEX REGIONAL PAIN SYNDROME
     Dosage: 50 MG, AS NEEDED
     Dates: start: 20080605
  4. HYDROCHLOROTHIAZIDE. [Concomitant]
     Active Substance: HYDROCHLOROTHIAZIDE
     Indication: HYPERTENSION
     Dosage: 25 MG, DAILY (1/D)
  5. DIAZEPAM. [Concomitant]
     Active Substance: DIAZEPAM
     Indication: MUSCLE SPASMS
     Dosage: 2.5 MG, 2/D
     Dates: start: 2008
  6. TOPAMAX [Concomitant]
     Active Substance: TOPIRAMATE
     Indication: HEADACHE
     Dosage: 125 MG, EACH EVENING
     Dates: start: 200806
  7. VOLTAREN [Concomitant]
     Active Substance: DICLOFENAC SODIUM
     Indication: COMPLEX REGIONAL PAIN SYNDROME
     Dosage: UNK, AS NEEDED
     Route: 061
     Dates: start: 2008
  8. CYMBALTA [Suspect]
     Active Substance: DULOXETINE HYDROCHLORIDE
     Indication: COMPLEX REGIONAL PAIN SYNDROME
     Dosage: 30 MG, UNK
     Dates: start: 20080821, end: 20080908

REACTIONS (5)
  - Seizure [Recovered/Resolved]
  - Drug interaction [Recovered/Resolved]
  - Somnambulism [Recovered/Resolved]
  - Tongue biting [Recovered/Resolved]
  - Tongue haemorrhage [Recovered/Resolved]

NARRATIVE: CASE EVENT DATE: 200809
